FAERS Safety Report 17315599 (Version 1)
Quarter: 2020Q1

REPORT INFORMATION
  Report Type: Spontaneous
  Country: FR (occurrence: FR)
  Receive Date: 20200124
  Receipt Date: 20200124
  Transmission Date: 20200409
  Serious: Yes (Other)
  Sender: FDA-Public Use
  Company Number: FR-PFIZER INC-2020028844

PATIENT
  Age: 27 Year
  Sex: Male

DRUGS (1)
  1. LYRICA [Suspect]
     Active Substance: PREGABALIN
     Indication: PANIC ATTACK
     Dosage: 6 DF, 1X/DAY
     Route: 048
     Dates: start: 2017

REACTIONS (5)
  - Off label use [Unknown]
  - Drug withdrawal syndrome [Not Recovered/Not Resolved]
  - Drug tolerance [Not Recovered/Not Resolved]
  - Product use in unapproved indication [Unknown]
  - Drug use disorder [Not Recovered/Not Resolved]

NARRATIVE: CASE EVENT DATE: 2017
